FAERS Safety Report 5611045-8 (Version None)
Quarter: 2008Q1

REPORT INFORMATION
  Report Type: 
  Country: None (occurrence: None)
  Receive Date: 20080201
  Receipt Date: 20080128
  Transmission Date: 20080703
  Serious: Yes (Hospitalization)
  Sender: FDA-Public Use
  Company Number: US-ASTRAZENECA-2007AC01407

PATIENT
  Age: 52 Year
  Sex: Male

DRUGS (13)
  1. QUETIAPINE FUMARATE [Suspect]
     Indication: PANIC DISORDER
  2. QUETIAPINE FUMARATE [Suspect]
     Indication: SCHIZOAFFECTIVE DISORDER
  3. QUETIAPINE FUMARATE [Suspect]
  4. QUETIAPINE FUMARATE [Suspect]
  5. QUETIAPINE FUMARATE [Suspect]
  6. QUETIAPINE FUMARATE [Suspect]
  7. QUETIAPINE FUMARATE [Suspect]
  8. QUETIAPINE FUMARATE [Suspect]
  9. QUETIAPINE FUMARATE [Suspect]
  10. QUETIAPINE FUMARATE [Suspect]
  11. QUETIAPINE FUMARATE [Suspect]
  12. QUETIAPINE FUMARATE [Suspect]
  13. MIRTAZAPINE [Suspect]

REACTIONS (2)
  - HYPERSOMNIA [None]
  - SOMNAMBULISM [None]
